FAERS Safety Report 9131505 (Version 1)
Quarter: 2013Q1

REPORT INFORMATION
  Report Type: Spontaneous
  Country: US (occurrence: US)
  Receive Date: 20130301
  Receipt Date: 20130301
  Transmission Date: 20140127
  Serious: Yes (Other)
  Sender: FDA-Public Use
  Company Number: US-PURDUE-USA-2013-0097698

PATIENT
  Age: 39 Year
  Sex: Female
  Weight: 75.74 kg

DRUGS (1)
  1. BUTRANS [Suspect]
     Indication: PAIN IN EXTREMITY
     Dosage: 5 MCG/HR, UNK
     Route: 062
     Dates: end: 20130115

REACTIONS (1)
  - Hepatic function abnormal [Recovered/Resolved]
